FAERS Safety Report 5494467-8 (Version None)
Quarter: 2007Q4

REPORT INFORMATION
  Report Type: 
  Country: None (occurrence: None)
  Receive Date: 20071022
  Receipt Date: 20071022
  Transmission Date: 20080405
  Serious: Yes (Other)
  Sender: FDA-Public Use
  Company Number: None

PATIENT
  Age: 52 Year
  Sex: Male
  Weight: 99.7913 kg

DRUGS (4)
  1. METOPROLOL TARTRATE [Suspect]
     Indication: DRUG THERAPY
     Dosage: 5/10 1 A DAY PO
     Route: 048
     Dates: start: 20070701, end: 20071017
  2. AMLODIPINE BESYLATE AND BENAZEPRIL HCL [Suspect]
     Indication: HYPERTENSION
     Dosage: 50 MG 1 A DAY PO
     Route: 048
     Dates: start: 20070701, end: 20071017
  3. TOPROL-XL [Suspect]
  4. LOTREL [Suspect]

REACTIONS (4)
  - PHARMACEUTICAL PRODUCT COMPLAINT [None]
  - RASH GENERALISED [None]
  - RASH PRURITIC [None]
  - RETCHING [None]
